FAERS Safety Report 5399167-0 (Version None)
Quarter: 2007Q3

REPORT INFORMATION
  Report Type: 
  Country: None (occurrence: None)
  Receive Date: 20070727
  Receipt Date: 20070712
  Transmission Date: 20080115
  Serious: Yes (Other)
  Sender: FDA-Public Use
  Company Number: CA-ELI_LILLY_AND_COMPANY-CA200705002320

PATIENT
  Age: 17 Year
  Sex: Female

DRUGS (2)
  1. HUMULIN N [Suspect]
     Indication: DIABETES MELLITUS
     Dosage: UNK, UNK
     Route: 058
     Dates: start: 19850101
  2. HUMALOG [Suspect]
     Indication: DIABETES MELLITUS
     Dosage: UNK, UNK
     Route: 058
     Dates: start: 19850101

REACTIONS (5)
  - ADVERSE DRUG REACTION [None]
  - CONVULSION [None]
  - FALL [None]
  - HYPOGLYCAEMIA [None]
  - LOSS OF CONSCIOUSNESS [None]
